FAERS Safety Report 20214211 (Version 4)
Quarter: 2022Q1

REPORT INFORMATION
  Report Type: Report from Study
  Country: US (occurrence: US)
  Receive Date: 20211221
  Receipt Date: 20220209
  Transmission Date: 20220423
  Serious: Yes (Other)
  Sender: FDA-Public Use
  Company Number: US-JAZZ-2021-US-022314

PATIENT
  Sex: Female

DRUGS (7)
  1. XYWAV [Suspect]
     Active Substance: CALCIUM OXYBATE\MAGNESIUM OXYBATE\POTASSIUM OXYBATE\SODIUM OXYBATE
     Indication: Narcolepsy
     Dosage: 4 GRAM, BID
     Route: 048
     Dates: start: 202106
  2. LYRICA [Concomitant]
     Active Substance: PREGABALIN
     Indication: Product used for unknown indication
     Dosage: 0010
     Dates: start: 20170604
  3. VITAMIN B12 [Concomitant]
     Active Substance: CYANOCOBALAMIN
     Indication: Product used for unknown indication
     Dosage: 0010
     Dates: start: 20020101
  4. FLECAINIDE ACETATE [Concomitant]
     Active Substance: FLECAINIDE ACETATE
     Indication: Product used for unknown indication
     Dosage: 0030
     Dates: start: 20130101
  5. XIIDRA [Concomitant]
     Active Substance: LIFITEGRAST
     Indication: Product used for unknown indication
     Dosage: 0000
     Dates: start: 20190320
  6. VITAMIN D2 [Concomitant]
     Active Substance: ERGOCALCIFEROL
     Indication: Product used for unknown indication
     Dosage: 0000
     Dates: start: 20190320
  7. LISINOPRIL [Concomitant]
     Active Substance: LISINOPRIL
     Indication: Product used for unknown indication
     Dosage: 0000
     Dates: start: 20190802

REACTIONS (4)
  - Gastrointestinal carcinoma [Unknown]
  - Abnormal sleep-related event [Unknown]
  - White blood cell count decreased [Unknown]
  - Intentional product use issue [Unknown]
